FAERS Safety Report 25500829 (Version 1)
Quarter: 2025Q3

REPORT INFORMATION
  Report Type: Report from Study
  Country: US (occurrence: US)
  Receive Date: 20250701
  Receipt Date: 20250701
  Transmission Date: 20251020
  Serious: No
  Sender: MALLINCKRODT
  Company Number: US-MALLINCKRODT-MNK202503546

PATIENT
  Sex: Female

DRUGS (2)
  1. CORTICOTROPIN [Suspect]
     Active Substance: CORTICOTROPIN
     Indication: Product used for unknown indication
  2. CORTICOTROPIN [Suspect]
     Active Substance: CORTICOTROPIN

REACTIONS (3)
  - Injection site urticaria [Unknown]
  - Injection site pain [Unknown]
  - Product dose omission issue [Unknown]
